FAERS Safety Report 7907327-7 (Version None)
Quarter: 2011Q4

REPORT INFORMATION
  Report Type: 
  Country: None (occurrence: None)
  Receive Date: 20111110
  Receipt Date: 20111102
  Transmission Date: 20120403
  Serious: Yes (Other)
  Sender: FDA-Public Use
  Company Number: LV-GLAXOSMITHKLINE-B0755482A

PATIENT
  Sex: Female

DRUGS (3)
  1. PECTORAL [Concomitant]
     Indication: BRONCHITIS
     Route: 048
     Dates: start: 20110930
  2. VENTOLIN [Suspect]
     Indication: BRONCHITIS
     Dosage: 5ML TWICE PER DAY
     Route: 048
     Dates: start: 20110930, end: 20111007
  3. AMOXICILLIN [Concomitant]
     Indication: BRONCHITIS
     Route: 048
     Dates: start: 20110930

REACTIONS (5)
  - ANGINA PECTORIS [None]
  - DECREASED ACTIVITY [None]
  - CHEST PAIN [None]
  - MALAISE [None]
  - HYPERSOMNIA [None]
